FAERS Safety Report 8795859 (Version 2)
Quarter: 2012Q4

REPORT INFORMATION
  Report Type: 
  Country: US (occurrence: US)
  Receive Date: 20120919
  Receipt Date: 20121015
  Transmission Date: 20130627
  Serious: Yes (Other)
  Sender: FDA-Public Use
  Company Number: PHEH2009US00699

PATIENT
  Age: 56 Year
  Sex: Female

DRUGS (12)
  1. DESFERAL [Suspect]
     Indication: TOXICITY TO VARIOUS AGENTS
     Dosage: 2 g, weekly
     Route: 058
     Dates: start: 2002, end: 20090117
  2. DESFERAL [Suspect]
     Dates: start: 1992, end: 2007
  3. DESFERAL [Suspect]
     Dates: start: 1990, end: 20120820
  4. NEOMYCIN SULF/POLYMYXIN B SULF/DEXAMETHASONE [Suspect]
     Dates: start: 20090105
  5. PRILOSEC [Suspect]
     Dates: start: 20120828
  6. EXJADE [Concomitant]
  7. FOLIC ACID [Concomitant]
     Dosage: 800 ug, UNK
  8. ZANTAC [Concomitant]
  9. NADOLOL [Concomitant]
  10. VITAMIN E [Concomitant]
     Dosage: 200 IU, UNK
  11. LANSOPRAZOLE [Concomitant]
     Dosage: 15 mg, UNK
  12. VITAMIN D [Concomitant]
     Dosage: 400 IU, UNK

REACTIONS (14)
  - Throat tightness [Unknown]
  - Blood iron increased [Unknown]
  - Lip swelling [Unknown]
  - Gastric disorder [Unknown]
  - Limb discomfort [Unknown]
  - Pain in extremity [Unknown]
  - Influenza like illness [Unknown]
  - Urticaria [Unknown]
  - Rash [Unknown]
  - Burning sensation [Unknown]
  - Pruritus [Recovered/Resolved]
  - Erythema [Unknown]
  - Headache [Unknown]
  - Hypersensitivity [Recovered/Resolved]
